FAERS Safety Report 9394960 (Version 1)
Quarter: 2013Q3

REPORT INFORMATION
  Report Type: Spontaneous
  Country: US (occurrence: US)
  Receive Date: 20130711
  Receipt Date: 20130711
  Transmission Date: 20140515
  Serious: Yes (Death)
  Sender: FDA-Public Use
  Company Number: US-COVIDIEN/TYCO HEALTHCARE/MALLINCKRODT-T201204334

PATIENT
  Sex: Male

DRUGS (2)
  1. ROXICODONE [Suspect]
     Indication: PRODUCT USED FOR UNKNOWN INDICATION
     Dosage: 10 MG/30 MG TOTAL, 3 TABS, UNK
     Dates: end: 201303
  2. ANTIBIOTICS [Concomitant]
     Indication: SINUSITIS
     Dosage: UNK

REACTIONS (4)
  - Drug dose omission [Unknown]
  - Arthralgia [Recovered/Resolved]
  - Back pain [Recovered/Resolved]
  - Diarrhoea [Recovered/Resolved]
